FAERS Safety Report 4954568-7 (Version None)
Quarter: 2006Q1

REPORT INFORMATION
  Report Type: 
  Country: None (occurrence: None)
  Receive Date: 20060327
  Receipt Date: 20060316
  Transmission Date: 20060701
  Serious: Yes (Other)
  Sender: FDA-Public Use
  Company Number: US-JNJFOC-20060203242

PATIENT
  Sex: Male
  Weight: 58.06 kg

DRUGS (5)
  1. RISPERDAL [Suspect]
     Route: 048
  2. ADDERALL XR 10 [Concomitant]
     Route: 048
  3. ADDERALL XR 10 [Concomitant]
     Route: 048
  4. ADDERALL XR 10 [Concomitant]
     Route: 048
  5. ADDERALL XR 10 [Concomitant]
     Route: 048

REACTIONS (1)
  - NEUTROPENIA [None]
